FAERS Safety Report 9982082 (Version 1)
Quarter: 2014Q1

REPORT INFORMATION
  Report Type: Report from Study
  Country: US (occurrence: US)
  Receive Date: 20140307
  Receipt Date: 20140307
  Transmission Date: 20141002
  Serious: No
  Sender: FDA-Public Use
  Company Number: US-ABBVIE-13P-163-1179104-00

PATIENT
  Age: 58 Year
  Sex: Female

DRUGS (9)
  1. HUMIRA [Suspect]
     Indication: RHEUMATOID ARTHRITIS
     Dates: start: 2003, end: 201311
  2. PREDNISONE [Concomitant]
     Indication: PRODUCT USED FOR UNKNOWN INDICATION
  3. METHOTREXATE [Concomitant]
     Indication: PRODUCT USED FOR UNKNOWN INDICATION
     Dosage: PILLS
  4. TRAMADOL [Concomitant]
     Indication: PAIN
     Dosage: 50-100MG, WITH TYLENOL, AT LEAST 1 OR 2/DAY
  5. TYLENOL [Concomitant]
     Indication: PAIN
     Dosage: WITH TRAMADOL, AT LEAST ONCE OR TWICE A DAY
  6. OTC FISH OIL [Concomitant]
     Indication: NUTRITIONAL SUPPLEMENTATION
     Dosage: DAILY
  7. CITALOPRAM [Concomitant]
     Indication: ANXIETY
  8. TRAZODONE [Concomitant]
     Indication: ANXIETY
  9. TRAZODONE [Concomitant]
     Indication: INSOMNIA

REACTIONS (2)
  - Angiopathy [Not Recovered/Not Resolved]
  - Synovial cyst [Not Recovered/Not Resolved]
